FAERS Safety Report 5711728-5 (Version None)
Quarter: 2008Q2

REPORT INFORMATION
  Report Type: 
  Country: None (occurrence: None)
  Receive Date: 20080421
  Receipt Date: 20080409
  Transmission Date: 20081010
  Serious: Yes (Other)
  Sender: FDA-Public Use
  Company Number: AU-PFIZER INC-2008011171

PATIENT
  Sex: Male
  Weight: 80 kg

DRUGS (28)
  1. VFEND [Suspect]
     Indication: ANTIFUNGAL PROPHYLAXIS
     Route: 042
     Dates: start: 20080121, end: 20080128
  2. VFEND [Suspect]
     Indication: EVIDENCE BASED TREATMENT
  3. VFEND [Suspect]
     Indication: ANTIFUNGAL PROPHYLAXIS
     Route: 048
  4. VFEND [Suspect]
     Indication: EVIDENCE BASED TREATMENT
  5. BACTRIM [Suspect]
     Indication: PNEUMOCYSTIS JIROVECI PNEUMONIA
     Route: 042
     Dates: start: 20080121, end: 20080205
  6. BACTRIM [Suspect]
     Route: 048
     Dates: start: 20080206, end: 20080211
  7. BACTRIM [Suspect]
     Route: 048
  8. VINCRISTINE [Concomitant]
     Dates: start: 20071227, end: 20080123
  9. PREDNISOLONE [Concomitant]
  10. DAUNORUBICIN HCL [Concomitant]
     Dates: start: 20071227, end: 20080123
  11. CYCLOPHOSPHAMIDE [Concomitant]
     Dosage: DAILY DOSE:1300MG
     Dates: start: 20080218, end: 20080320
  12. CYTARABINE [Concomitant]
     Dosage: DAILY DOSE:150MG
     Dates: start: 20080218, end: 20080320
  13. MERCAPTOPURINE [Concomitant]
  14. METHOTREXATE [Concomitant]
     Dosage: DAILY DOSE:125MG
     Route: 037
  15. METHOTREXATE [Concomitant]
     Route: 037
  16. ELSPAR [Concomitant]
     Dates: start: 20080114, end: 20080404
  17. AUGMENTIN '125' [Concomitant]
     Dates: start: 20080104, end: 20080109
  18. CIPROFLOXACIN [Concomitant]
     Dates: start: 20071227, end: 20080102
  19. ENOXAPARIN SODIUM [Concomitant]
     Dates: start: 20080131, end: 20080312
  20. FLUCONAZOLE [Concomitant]
     Dates: start: 20080101, end: 20080118
  21. MEROPENEM [Concomitant]
     Indication: FEBRILE NEUTROPENIA
     Dates: start: 20080122, end: 20080227
  22. PARACETAMOL [Concomitant]
  23. TIMENTIN [Concomitant]
     Dates: start: 20071224, end: 20080102
  24. TIMENTIN [Concomitant]
     Dates: start: 20080121, end: 20080122
  25. TIMENTIN [Concomitant]
     Dates: start: 20080318, end: 20080323
  26. TPN [Concomitant]
     Dates: start: 20080128, end: 20080131
  27. VALACYCLOVIR [Concomitant]
  28. VANCOMYCIN [Concomitant]
     Dates: start: 20080121, end: 20080127

REACTIONS (18)
  - ALANINE AMINOTRANSFERASE INCREASED [None]
  - ANION GAP INCREASED [None]
  - BLOOD ALBUMIN DECREASED [None]
  - BLOOD ALKALINE PHOSPHATASE INCREASED [None]
  - BLOOD BICARBONATE INCREASED [None]
  - BLOOD BILIRUBIN INCREASED [None]
  - BLOOD CALCIUM DECREASED [None]
  - BLOOD CREATINE PHOSPHOKINASE DECREASED [None]
  - BLOOD CREATININE INCREASED [None]
  - BLOOD PHOSPHORUS ABNORMAL [None]
  - BLOOD POTASSIUM ABNORMAL [None]
  - BLOOD SODIUM ABNORMAL [None]
  - BLOOD UREA INCREASED [None]
  - C-REACTIVE PROTEIN INCREASED [None]
  - FEBRILE NEUTROPENIA [None]
  - GAMMA-GLUTAMYLTRANSFERASE INCREASED [None]
  - GLOMERULAR FILTRATION RATE DECREASED [None]
  - PROTEIN TOTAL DECREASED [None]
